FAERS Safety Report 18879506 (Version 3)
Quarter: 2022Q2

REPORT INFORMATION
  Report Type: Spontaneous
  Country: US (occurrence: US)
  Receive Date: 20210211
  Receipt Date: 20220523
  Transmission Date: 20220721
  Serious: No
  Sender: FDA-Public Use
  Company Number: US-VERTEX PHARMACEUTICALS-2021-002175

PATIENT
  Sex: Male

DRUGS (22)
  1. TRIKAFTA [Suspect]
     Active Substance: ELEXACAFTOR\IVACAFTOR\TEZACAFTOR
     Indication: Cystic fibrosis
     Dosage: TWO ORANGE TABLETS AM AND ONE BLUE TABLET PM
     Route: 048
     Dates: start: 20200318, end: 20210609
  2. TRIKAFTA [Suspect]
     Active Substance: ELEXACAFTOR\IVACAFTOR\TEZACAFTOR
     Dosage: ONE TABLET IN THE MORNING
     Route: 048
     Dates: start: 202205
  3. BACTRIM DS [Concomitant]
     Active Substance: SULFAMETHOXAZOLE\TRIMETHOPRIM
  4. SODIUM CHLORIDE [Concomitant]
     Active Substance: SODIUM CHLORIDE
  5. LORATADINE [Concomitant]
     Active Substance: LORATADINE
  6. MELATONINS [Concomitant]
  7. PHYTONADIONE [Concomitant]
     Active Substance: PHYTONADIONE
  8. POLYETHYLENE GLYCOL 3350 [Concomitant]
     Active Substance: POLYETHYLENE GLYCOL 3350
  9. SERTRALINE HYDROCHLORIDE [Concomitant]
     Active Substance: SERTRALINE HYDROCHLORIDE
  10. VITAMIN A [Concomitant]
     Active Substance: VITAMIN A
     Dosage: 25000/D-400
  11. URSODIOL [Concomitant]
     Active Substance: URSODIOL
  12. CREON [Concomitant]
     Active Substance: PANCRELIPASE AMYLASE\PANCRELIPASE LIPASE\PANCRELIPASE PROTEASE
  13. LAMOTRIGINE [Concomitant]
     Active Substance: LAMOTRIGINE
  14. PULMOZYME [Concomitant]
     Active Substance: DORNASE ALFA
  15. FAMOTIDINE [Concomitant]
     Active Substance: FAMOTIDINE
  16. FERROUS SULFATE [Concomitant]
     Active Substance: FERROUS SULFATE
  17. DEXTROAMPHETAMINE SULFATE [Concomitant]
     Active Substance: DEXTROAMPHETAMINE SULFATE
  18. FORTAZ [Concomitant]
     Active Substance: CEFTAZIDIME SODIUM
  19. CETIRIZINE HYDROCHLORIDE [Concomitant]
     Active Substance: CETIRIZINE HYDROCHLORIDE
  20. ALBUTEROL SULFATE [Concomitant]
     Active Substance: ALBUTEROL SULFATE
  21. AZITHROMYCIN [Concomitant]
     Active Substance: AZITHROMYCIN
  22. CAYSTON [Concomitant]
     Active Substance: AZTREONAM

REACTIONS (3)
  - Mood altered [Unknown]
  - Anxiety [Unknown]
  - Depression [Unknown]

NARRATIVE: CASE EVENT DATE: 20200101
